FAERS Safety Report 13331255 (Version 1)
Quarter: 2017Q1

REPORT INFORMATION
  Report Type: Spontaneous
  Country: US (occurrence: US)
  Receive Date: 20170314
  Receipt Date: 20170314
  Transmission Date: 20170428
  Serious: Yes (Death, Hospitalization, Other)
  Sender: FDA-Public Use
  Company Number: US-ZYDUS-014090

PATIENT
  Age: 13 Year
  Sex: Female

DRUGS (1)
  1. BUPROPION/BUPROPION HYDROCHLORIDE [Suspect]
     Active Substance: BUPROPION HYDROCHLORIDE
     Indication: PRODUCT USED FOR UNKNOWN INDICATION
     Route: 048

REACTIONS (19)
  - Intentional overdose [Not Recovered/Not Resolved]
  - Unresponsive to stimuli [Not Recovered/Not Resolved]
  - Apnoea [Not Recovered/Not Resolved]
  - Ventricular fibrillation [Not Recovered/Not Resolved]
  - Cardiac arrest [Not Recovered/Not Resolved]
  - Respiration abnormal [Not Recovered/Not Resolved]
  - Ventricular tachycardia [Not Recovered/Not Resolved]
  - Brain oedema [Not Recovered/Not Resolved]
  - Pupil fixed [Not Recovered/Not Resolved]
  - Corneal reflex decreased [Not Recovered/Not Resolved]
  - Brain stem syndrome [Not Recovered/Not Resolved]
  - Completed suicide [Fatal]
  - Electrocardiogram QT prolonged [Not Recovered/Not Resolved]
  - Oculocephalogyric reflex absent [Not Recovered/Not Resolved]
  - Seizure [Not Recovered/Not Resolved]
  - Mydriasis [Not Recovered/Not Resolved]
  - Brain death [Fatal]
  - Coma [Not Recovered/Not Resolved]
  - Papilloedema [Not Recovered/Not Resolved]
